FAERS Safety Report 5718043-4 (Version None)
Quarter: 2008Q2

REPORT INFORMATION
  Report Type: 
  Country: None (occurrence: None)
  Receive Date: 20080425
  Receipt Date: 20080414
  Transmission Date: 20081010
  Serious: Yes (Hospitalization)
  Sender: FDA-Public Use
  Company Number: JP-ELI_LILLY_AND_COMPANY-JP200804005648

PATIENT
  Age: 75 Year
  Sex: Female

DRUGS (2)
  1. ZYPREXA [Suspect]
     Dosage: 5 MG, UNK
     Route: 048
  2. ROHYPNOL [Concomitant]

REACTIONS (4)
  - BLOOD GROWTH HORMONE DECREASED [None]
  - HORMONE LEVEL ABNORMAL [None]
  - NASOPHARYNGITIS [None]
  - THYROID FUNCTION TEST ABNORMAL [None]
